FAERS Safety Report 20447038 (Version 3)
Quarter: 2022Q1

REPORT INFORMATION
  Report Type: Report from Study
  Country: JP (occurrence: JP)
  Receive Date: 20220209
  Receipt Date: 20220308
  Transmission Date: 20220423
  Serious: Yes (Other)
  Sender: FDA-Public Use
  Company Number: JP-JNJFOC-20220209834

PATIENT

DRUGS (1)
  1. SIMPONI [Suspect]
     Active Substance: GOLIMUMAB
     Indication: Rheumatoid arthritis
     Dosage: DOSE UNKNOWN?GOLIMUMAB (GENETICAL RECOMBINATION):50MG
     Route: 058

REACTIONS (5)
  - Pneumonia [Unknown]
  - Drug eruption [Unknown]
  - Diarrhoea [Unknown]
  - Alopecia [Unknown]
  - Drug ineffective [Unknown]
